FAERS Safety Report 6525615-6 (Version None)
Quarter: 2010Q1

REPORT INFORMATION
  Report Type: 
  Country: None (occurrence: None)
  Receive Date: 20100104
  Receipt Date: 20091212
  Transmission Date: 20100710
  Serious: Yes (Other)
  Sender: FDA-Public Use
  Company Number: IT-ROCHE-677259

PATIENT
  Age: 63 Year
  Sex: Male

DRUGS (3)
  1. CAPECITABINE [Suspect]
     Indication: COLON CANCER
     Route: 065
  2. BEVACIZUMAB [Suspect]
     Indication: COLON CANCER
     Dosage: LOW DOSE 2.5 MG/KG/WEEK.
     Route: 065
  3. OXALIPLATIN [Suspect]
     Indication: COLON CANCER
     Route: 065

REACTIONS (1)
  - LARGE INTESTINE PERFORATION [None]
